FAERS Safety Report 14349978 (Version 3)
Quarter: 2018Q1

REPORT INFORMATION
  Report Type: Spontaneous
  Country: ES (occurrence: ES)
  Receive Date: 20180104
  Receipt Date: 20180303
  Transmission Date: 20180509
  Serious: Yes (Life-Threatening, Hospitalization, Other)
  Sender: FDA-Public Use
  Company Number: ES-AUROBINDO-AUR-APL-2018-000222

PATIENT
  Age: 24 Year
  Sex: Female

DRUGS (5)
  1. TOPIRAMATE FILM COATED TABLETS [Suspect]
     Active Substance: TOPIRAMATE
     Indication: PERSONALITY DISORDER
     Dosage: UNK
  2. CLORAZEPATE [Suspect]
     Active Substance: CLORAZEPATE DIPOTASSIUM
     Indication: PERSONALITY DISORDER
     Dosage: ()
  3. CLORAZEPATE [Suspect]
     Active Substance: CLORAZEPATE DIPOTASSIUM
     Dosage: ()
  4. QUETIAPINE FILM-COATED TABLET [Suspect]
     Active Substance: QUETIAPINE
     Dosage: UNK
  5. DULOXETINE. [Suspect]
     Active Substance: DULOXETINE
     Indication: PERSONALITY DISORDER
     Dosage: ()

REACTIONS (6)
  - Mydriasis [None]
  - Intentional overdose [Unknown]
  - Capillary disorder [None]
  - Loss of consciousness [Unknown]
  - Coma blister [Recovered/Resolved]
  - Blood creatine phosphokinase increased [Unknown]
